FAERS Safety Report 7328967-2 (Version None)
Quarter: 2011Q1

REPORT INFORMATION
  Report Type: 
  Country: None (occurrence: None)
  Receive Date: 20110225
  Receipt Date: 20110225
  Transmission Date: 20110831
  Serious: Yes (Life-Threatening)
  Sender: FDA-Public Use
  Company Number: None

PATIENT
  Age: 88 Year
  Sex: Female
  Weight: 77.1115 kg

DRUGS (1)
  1. ALDARA [Suspect]
     Indication: BASAL CELL CARCINOMA

REACTIONS (2)
  - SWELLING FACE [None]
  - LYMPHOMA [None]
